FAERS Safety Report 9013992 (Version 4)
Quarter: 2013Q3

REPORT INFORMATION
  Report Type: Report from Study
  Country: IT (occurrence: IT)
  Receive Date: 20130115
  Receipt Date: 20130813
  Transmission Date: 20140515
  Serious: Yes (Other)
  Sender: FDA-Public Use
  Company Number: IT-CELGENEUS-083-21880-13011330

PATIENT
  Age: 76 Year
  Sex: Female
  Weight: 47 kg

DRUGS (23)
  1. REVLIMID [Suspect]
     Indication: PLASMA CELL MYELOMA
     Dosage: 15 MILLIGRAM
     Route: 048
     Dates: start: 20110307, end: 20110327
  2. REVLIMID [Suspect]
     Dosage: 10 MILLIGRAM
     Route: 048
     Dates: start: 20110620, end: 20110710
  3. REVLIMID [Suspect]
     Dosage: 10 MILLIGRAM
     Route: 048
     Dates: start: 20110721, end: 20110807
  4. REVLIMID [Suspect]
     Dosage: 10 MILLIGRAM
     Route: 048
     Dates: start: 20120110, end: 20120208
  5. REVLIMID [Suspect]
     Dosage: 5 MILLIGRAM
     Route: 048
     Dates: start: 20120712, end: 20120806
  6. REVLIMID [Suspect]
     Dosage: 5 MILLIGRAM
     Route: 048
     Dates: start: 20121028, end: 20121112
  7. PREDNISONE [Concomitant]
     Indication: PLASMA CELL MYELOMA
     Dosage: 12.5 MILLIGRAM
     Route: 048
     Dates: start: 20110307, end: 20110403
  8. PREDNISONE [Concomitant]
     Dosage: 15 MILLIGRAM
     Route: 048
     Dates: start: 20110505, end: 20110608
  9. PREDNISONE [Concomitant]
     Dosage: 4.1667 MILLIGRAM
     Route: 048
     Dates: start: 20110609, end: 20110619
  10. PREDNISONE [Concomitant]
     Dosage: 11.6667 MILLIGRAM
     Route: 048
     Dates: start: 20110620, end: 20110717
  11. PREDNISONE [Concomitant]
     Dosage: .8333 MILLIGRAM
     Route: 048
     Dates: start: 20110718, end: 20110720
  12. PREDNISONE [Concomitant]
     Dosage: 3.3333 MILLIGRAM
     Route: 048
     Dates: start: 20110721, end: 20110807
  13. PREDNISONE [Concomitant]
     Dosage: 11.6667 MILLIGRAM
     Route: 048
     Dates: start: 20110808, end: 20110904
  14. PREDNISONE [Concomitant]
     Dosage: 2.5 MILLIGRAM
     Route: 048
     Dates: start: 20110905, end: 20110911
  15. PREDNISONE [Concomitant]
     Dosage: 11.6667 MILLIGRAM
     Route: 048
     Dates: start: 20110912, end: 20111009
  16. PREDNISONE [Concomitant]
     Dosage: 1.6667 MILLIGRAM
     Route: 048
     Dates: start: 20111010, end: 20111012
  17. PREDNISONE [Concomitant]
     Dosage: 11.6667 MILLIGRAM
     Route: 048
     Dates: start: 20111013, end: 20111207
  18. PREDNISONE [Concomitant]
     Dosage: 6.6667 MILLIGRAM
     Route: 048
     Dates: start: 20111208, end: 20111221
  19. PREDNISONE [Concomitant]
     Dosage: 7.5 MILLIGRAM
     Route: 048
     Dates: start: 20111222, end: 20120109
  20. PREDNISONE [Concomitant]
     Dosage: 12.5 MILLIGRAM
     Route: 048
     Dates: start: 20120110, end: 20120208
  21. PREDNISONE [Concomitant]
     Dosage: 2.5 MILLIGRAM
     Route: 048
     Dates: start: 20120209, end: 20120308
  22. ASA [Concomitant]
     Indication: THROMBOSIS PROPHYLAXIS
     Dosage: 100 MILLIGRAM
     Route: 048
     Dates: start: 20110302, end: 20121112
  23. HAEMATOPOIETIC COLONY STIMULATING FACTOR [Concomitant]
     Indication: PRODUCT USED FOR UNKNOWN INDICATION
     Route: 065
     Dates: end: 20121102

REACTIONS (2)
  - Basal cell carcinoma [Recovered/Resolved]
  - Plasma cell myeloma [Unknown]
